FAERS Safety Report 25721183 (Version 1)
Quarter: 2025Q3

REPORT INFORMATION
  Report Type: Other
  Country: CA (occurrence: CA)
  Receive Date: 20250825
  Receipt Date: 20250825
  Transmission Date: 20251020
  Serious: Yes (Other)
  Sender: APOTEX
  Company Number: CA-PGRTD-E2B_07916694

PATIENT
  Age: 54 Year
  Sex: Female

DRUGS (1)
  1. DICLOFENAC [Suspect]
     Active Substance: DICLOFENAC
     Indication: Product used for unknown indication
     Route: 065

REACTIONS (5)
  - Pain [Recovering/Resolving]
  - Bone erosion [Recovering/Resolving]
  - Musculoskeletal stiffness [Recovering/Resolving]
  - Mycobacterium tuberculosis complex test positive [Recovering/Resolving]
  - Sacroiliitis [Recovering/Resolving]
